FAERS Safety Report 14157394 (Version 1)
Quarter: 2017Q4

REPORT INFORMATION
  Report Type: Spontaneous
  Country: US (occurrence: US)
  Receive Date: 20171101
  Receipt Date: 20171101
  Transmission Date: 20180321
  Serious: Yes (Life-Threatening, Hospitalization, Other)
  Sender: FDA-Public Use
  Company Number: None

PATIENT
  Age: 35 Year
  Sex: Male
  Weight: 54 kg

DRUGS (6)
  1. MITRAGYNINE (KRATOM) [Suspect]
     Active Substance: MITRAGYNINE\HERBALS
     Indication: DEPRESSION
     Dosage: QUANTITY:30 GRAMS;OTHER FREQUENCY:SPREAD THROUGH DAY;?
     Route: 048
  2. LAMICTAL [Concomitant]
     Active Substance: LAMOTRIGINE
  3. MITRAGYNINE (KRATOM) [Suspect]
     Active Substance: MITRAGYNINE\HERBALS
     Indication: ANXIETY
     Dosage: QUANTITY:30 GRAMS;OTHER FREQUENCY:SPREAD THROUGH DAY;?
     Route: 048
  4. MELATONIN [Concomitant]
     Active Substance: MELATONIN
  5. KEPPRA [Concomitant]
     Active Substance: LEVETIRACETAM
  6. B-CPMPLEX VITAMIN [Concomitant]

REACTIONS (1)
  - Generalised tonic-clonic seizure [None]

NARRATIVE: CASE EVENT DATE: 20171026
